FAERS Safety Report 25629686 (Version 1)
Quarter: 2025Q3

REPORT INFORMATION
  Report Type: Spontaneous
  Country: CN (occurrence: CN)
  Receive Date: 20250731
  Receipt Date: 20250731
  Transmission Date: 20251021
  Serious: Yes (Other)
  Sender: DR REDDYS
  Company Number: CN-CHN-CHN/2025/07/011340

PATIENT
  Age: 51 Year
  Sex: Female

DRUGS (8)
  1. DOXORUBICIN [Suspect]
     Active Substance: DOXORUBICIN
     Indication: T-cell prolymphocytic leukaemia
  2. CYCLOPHOSPHAMIDE [Concomitant]
     Active Substance: CYCLOPHOSPHAMIDE
     Indication: T-cell prolymphocytic leukaemia
  3. VINCRISTINE [Concomitant]
     Active Substance: VINCRISTINE
     Indication: T-cell prolymphocytic leukaemia
  4. PREDNISONE [Concomitant]
     Active Substance: PREDNISONE
     Indication: T-cell prolymphocytic leukaemia
  5. FLUDARABINE [Concomitant]
     Active Substance: FLUDARABINE PHOSPHATE
     Indication: T-cell prolymphocytic leukaemia
  6. mitoxantrone liposome [Concomitant]
     Indication: T-cell prolymphocytic leukaemia
  7. ETOPOSIDE [Concomitant]
     Active Substance: ETOPOSIDE
     Indication: T-cell prolymphocytic leukaemia
  8. TUCIDINOSTAT [Concomitant]
     Active Substance: TUCIDINOSTAT
     Indication: T-cell prolymphocytic leukaemia

REACTIONS (1)
  - Drug ineffective for unapproved indication [Unknown]
